FAERS Safety Report 4493144-X (Version None)
Quarter: 2004Q4

REPORT INFORMATION
  Report Type: 
  Country: None (occurrence: None)
  Receive Date: 20041029
  Receipt Date: 20041015
  Transmission Date: 20050328
  Serious: Yes (Death, Hospitalization)
  Sender: FDA-Public Use
  Company Number: 174558

PATIENT
  Age: 68 Year
  Sex: Female
  Weight: 53.5244 kg

DRUGS (4)
  1. AVONEX [Suspect]
     Indication: MULTIPLE SCLEROSIS
     Dosage: 30 MCG QW IM
     Route: 030
     Dates: start: 20010101, end: 20030601
  2. SOLU-MEDROL [Concomitant]
  3. DITROPAN [Concomitant]
  4. STOOL SOFTENER [Concomitant]

REACTIONS (4)
  - CONTUSION [None]
  - DEHYDRATION [None]
  - DEPRESSION [None]
  - LOSS OF CONSCIOUSNESS [None]
